FAERS Safety Report 7089013-1 (Version None)
Quarter: 2010Q4

REPORT INFORMATION
  Report Type: 
  Country: None (occurrence: None)
  Receive Date: 20101108
  Receipt Date: 20101028
  Transmission Date: 20110411
  Serious: Yes (Other)
  Sender: FDA-Public Use
  Company Number: A0872948A

PATIENT
  Age: 59 Year
  Sex: Female
  Weight: 101.4 kg

DRUGS (16)
  1. VOTRIENT [Suspect]
     Dosage: 800MG PER DAY
     Route: 048
     Dates: start: 20100607, end: 20100728
  2. OMEPRAZOLE [Concomitant]
  3. LEVOTHYROXINE SODIUM [Concomitant]
  4. ZETIA [Concomitant]
  5. LISINOPRIL [Concomitant]
  6. ACTOS [Concomitant]
  7. JANUVIA [Concomitant]
  8. SIMVASTATIN [Concomitant]
  9. GLIPIZIDE [Concomitant]
  10. WARFARIN [Concomitant]
  11. NEURONTIN [Concomitant]
  12. PERCOCET [Concomitant]
  13. ONDANSETRON [Concomitant]
  14. MULTI-VITAMIN [Concomitant]
  15. CALCIUM [Concomitant]
  16. MAGNESIUM [Concomitant]

REACTIONS (5)
  - DISEASE PROGRESSION [None]
  - DRUG INEFFECTIVE [None]
  - METASTASES TO LUNG [None]
  - PAIN [None]
  - RENAL CANCER [None]
